FAERS Safety Report 4406182-X (Version None)
Quarter: 2004Q3

REPORT INFORMATION
  Report Type: 
  Country: None (occurrence: None)
  Receive Date: 20040715
  Receipt Date: 20040629
  Transmission Date: 20050211
  Serious: Yes (Other)
  Sender: FDA-Public Use
  Company Number: 1998-BP-01848 (4)

PATIENT
  Age: 3 Month
  Sex: Female
  Weight: 4.9 kg

DRUGS (5)
  1. VIRAMUNE [Suspect]
     Indication: HIV INFECTION
     Dosage: 3 ML (, DAILY), PO
     Route: 048
     Dates: start: 19980921
  2. STAVUDINE (STAVUDINE) [Concomitant]
  3. LAMIVUDINE (LAMIVUDINE) [Concomitant]
  4. NELFINAVIR [Concomitant]
  5. BACTRIM [Concomitant]

REACTIONS (4)
  - CLONUS [None]
  - HYPERREFLEXIA [None]
  - HYPERTONIA [None]
  - TREMOR [None]
